FAERS Safety Report 7577443-0 (Version None)
Quarter: 2011Q2

REPORT INFORMATION
  Report Type: 
  Country: None (occurrence: None)
  Receive Date: 20110628
  Receipt Date: 20110204
  Transmission Date: 20111010
  Serious: Yes (Hospitalization, Other)
  Sender: FDA-Public Use
  Company Number: US-BAYER-201028783NA

PATIENT
  Sex: Female
  Weight: 68.027 kg

DRUGS (17)
  1. YASMIN [Suspect]
     Indication: CONTRACEPTION
     Dosage: UNK
     Dates: start: 20040101, end: 20100101
  2. ALBUTEROL SULFATE AUTOHALER [Concomitant]
     Indication: ASTHMA
     Dosage: UNK UNK, PRN
  3. ZITHROMAX [Concomitant]
  4. PRILOSEC [Concomitant]
     Indication: DYSPEPSIA
     Dosage: UNK
     Dates: start: 20000101
  5. ALLEGRA [Concomitant]
     Dosage: UNK
     Dates: start: 20040501
  6. IBUPROFEN [Concomitant]
     Indication: HEADACHE
     Dosage: UNK UNK, PRN
  7. LOPERAMIDE [Concomitant]
     Dosage: UNK
     Dates: start: 20060601
  8. OMEPRAZOLE [Concomitant]
     Dosage: UNK
     Dates: start: 20080301
  9. HUMIBID LA [Concomitant]
     Dosage: UNK
     Dates: start: 20040501
  10. YASMIN [Suspect]
     Indication: PREMENSTRUAL SYNDROME
  11. PROTONIX [Concomitant]
     Dosage: UNK
     Dates: start: 20041201
  12. NEXIUM [Concomitant]
     Dosage: UNK
     Dates: start: 20060501
  13. PRILOSEC [Concomitant]
     Indication: GASTROOESOPHAGEAL REFLUX DISEASE
  14. FLONASE [Concomitant]
     Dosage: UNK
     Dates: start: 20040501
  15. LEVOTHYROXINE SODIUM [Concomitant]
     Dosage: UNK
     Dates: start: 20070201
  16. ALBUTEROL [Concomitant]
     Dosage: UNK
     Dates: start: 20081201
  17. DICYCLOMINE [Concomitant]
     Dosage: UNK
     Dates: start: 20060601

REACTIONS (2)
  - GALLBLADDER INJURY [None]
  - CHOLECYSTITIS CHRONIC [None]
